FAERS Safety Report 7770245-1 (Version None)
Quarter: 2011Q3

REPORT INFORMATION
  Report Type: 
  Country: None (occurrence: None)
  Receive Date: 20110922
  Receipt Date: 20100920
  Transmission Date: 20111222
  Serious: No
  Sender: FDA-Public Use
  Company Number: US-ASTRAZENECA-2010SE20391

PATIENT
  Age: 616 Month
  Sex: Female
  Weight: 80.7 kg

DRUGS (19)
  1. SEROQUEL XR [Suspect]
     Route: 048
  2. WALMART ACID REDUCER [Concomitant]
     Indication: GASTROOESOPHAGEAL REFLUX DISEASE
  3. FISH OIL [Concomitant]
  4. ASPIRIN [Concomitant]
  5. HYDROXIZINE [Concomitant]
     Indication: OBSESSIVE-COMPULSIVE DISORDER
  6. MULTI-VITAMIN [Concomitant]
  7. EQUATE ACID REDUCER [Concomitant]
     Indication: GASTROOESOPHAGEAL REFLUX DISEASE
  8. HYDRALAZINE HCL [Concomitant]
  9. POWDER FIBER [Concomitant]
  10. SEROQUEL XR [Suspect]
     Route: 048
  11. VITAMIN D WITH CALCIUM [Concomitant]
  12. WALMART FIBER DRINK [Concomitant]
     Dosage: MIX 2 HEAPING TEASPOONS
  13. SEROQUEL XR [Suspect]
     Indication: BIPOLAR DISORDER
     Route: 048
  14. SEROQUEL XR [Suspect]
     Route: 048
     Dates: start: 20100426
  15. SEROQUEL XR [Suspect]
     Route: 048
  16. TOPROL-XL [Concomitant]
     Indication: HYPERTENSION
  17. ANTIBIOTICS [Concomitant]
  18. EFFEXOR [Concomitant]
  19. ATIVAN [Concomitant]

REACTIONS (10)
  - VERTIGO [None]
  - SOMNOLENCE [None]
  - EMOTIONAL DISORDER [None]
  - WRONG TECHNIQUE IN DRUG USAGE PROCESS [None]
  - VOMITING [None]
  - DRUG INEFFECTIVE [None]
  - EAR CONGESTION [None]
  - WEIGHT INCREASED [None]
  - FLASHBACK [None]
  - INSOMNIA [None]
